FAERS Safety Report 20846094 (Version 2)
Quarter: 2023Q2

REPORT INFORMATION
  Report Type: Spontaneous
  Country: US (occurrence: US)
  Receive Date: 20220518
  Receipt Date: 20230512
  Transmission Date: 20230721
  Serious: Yes (Other)
  Sender: FDA-Public Use
  Company Number: US-PFIZER INC-202200327819

PATIENT
  Age: 81 Year
  Sex: Male
  Weight: 70.76 kg

DRUGS (1)
  1. DISOPYRAMIDE PHOSPHATE [Suspect]
     Active Substance: DISOPYRAMIDE PHOSPHATE
     Indication: Cardiomyopathy
     Dosage: 100 MG, 4X/DAY (EVERY 6 HOURS)
     Dates: start: 202202

REACTIONS (1)
  - Drug effect less than expected [Unknown]
